FAERS Safety Report 24264408 (Version 5)
Quarter: 2024Q4

REPORT INFORMATION
  Report Type: Report from Study
  Country: US (occurrence: US)
  Receive Date: 20240829
  Receipt Date: 20241126
  Transmission Date: 20250114
  Serious: Yes (Other)
  Sender: NOVARTIS
  Company Number: US-002147023-NVSC2024US173568

PATIENT
  Sex: Female

DRUGS (1)
  1. KESIMPTA [Suspect]
     Active Substance: OFATUMUMAB
     Indication: Relapsing multiple sclerosis
     Dosage: UNK
     Route: 065

REACTIONS (11)
  - Myoclonic epilepsy [Unknown]
  - Chills [Unknown]
  - Hyperhidrosis [Unknown]
  - Pain [Unknown]
  - Pyrexia [Unknown]
  - Disorientation [Unknown]
  - Headache [Recovering/Resolving]
  - Dysphagia [Recovering/Resolving]
  - Dizziness [Unknown]
  - Fatigue [Unknown]
  - Gastrooesophageal reflux disease [Unknown]
